FAERS Safety Report 4441430-1 (Version None)
Quarter: 2004Q3

REPORT INFORMATION
  Report Type: 
  Country: None (occurrence: None)
  Receive Date: 20040728
  Receipt Date: 20040408
  Transmission Date: 20050211
  Serious: No
  Sender: FDA-Public Use
  Company Number: USA040464441

PATIENT
  Age: 33 Year
  Sex: Male
  Weight: 70 kg

DRUGS (1)
  1. STRATTERA [Suspect]
     Indication: FATIGUE
     Dosage: 100 MG DAY
     Dates: start: 20040101

REACTIONS (3)
  - AGEUSIA [None]
  - PAROSMIA [None]
  - YAWNING [None]
